FAERS Safety Report 5990595-9 (Version None)
Quarter: 2008Q4

REPORT INFORMATION
  Report Type: 
  Country: None (occurrence: None)
  Receive Date: 20081211
  Receipt Date: 20081205
  Transmission Date: 20090506
  Serious: Yes (Death, Hospitalization)
  Sender: FDA-Public Use
  Company Number: A0750967A

PATIENT
  Age: 64 Year
  Sex: Male
  Weight: 102.3 kg

DRUGS (7)
  1. AVANDIA [Suspect]
     Dosage: 8MG PER DAY
     Route: 048
     Dates: start: 20010125, end: 20070301
  2. TRICOR [Concomitant]
  3. GLYBURIDE [Concomitant]
  4. ZYRTEC [Concomitant]
  5. AVAPRO [Concomitant]
  6. OMEPRAZOLE [Concomitant]
  7. QUINAPRIL [Concomitant]

REACTIONS (1)
  - MYOCARDIAL INFARCTION [None]
